FAERS Safety Report 7107372-8 (Version None)
Quarter: 2010Q4

REPORT INFORMATION
  Report Type: 
  Country: None (occurrence: None)
  Receive Date: 20101112
  Receipt Date: 20101112
  Transmission Date: 20110411
  Serious: No
  Sender: FDA-Public Use
  Company Number: None

PATIENT
  Sex: Female
  Weight: 42.5 kg

DRUGS (6)
  1. DAUNORUBICIN HCL [Suspect]
     Dosage: 171 MG
     Dates: end: 20101020
  2. METHOTREXATE [Suspect]
     Dosage: 30 MG
     Dates: end: 20101015
  3. PEG-L- ASPARAGINASE (PEGASPARGASE, ONCOSPAR) [Suspect]
     Dosage: 6750 UNIT
     Dates: end: 20101023
  4. PREDNISONE [Suspect]
     Dosage: 3360 MG
     Dates: end: 20101102
  5. VINCRISTINE SULFATE [Suspect]
     Dosage: 12 MG
     Dates: end: 20101027
  6. CYTARABINE [Suspect]
     Dosage: 70 MG
     Dates: end: 20100917

REACTIONS (1)
  - BLOOD BILIRUBIN INCREASED [None]
